FAERS Safety Report 24634427 (Version 3)
Quarter: 2025Q3

REPORT INFORMATION
  Report Type: Report from Study
  Country: IL (occurrence: IL)
  Receive Date: 20241119
  Receipt Date: 20250821
  Transmission Date: 20251021
  Serious: Yes (Hospitalization)
  Sender: ABBVIE
  Company Number: IL-ABBVIE-6007013

PATIENT
  Age: 29 Year
  Sex: Female
  Weight: 54 kg

DRUGS (5)
  1. RISANKIZUMAB [Suspect]
     Active Substance: RISANKIZUMAB
     Indication: Crohn^s disease
     Route: 042
     Dates: start: 20241015
  2. BUDESONIDE [Concomitant]
     Active Substance: BUDESONIDE
     Indication: Crohn^s disease
     Route: 048
     Dates: start: 20240915
  3. DIPYRONE [Concomitant]
     Active Substance: DIPYRONE
     Indication: Crohn^s disease
     Route: 042
     Dates: start: 20241019, end: 20241026
  4. HYDROCORTISONE [Concomitant]
     Active Substance: HYDROCORTISONE
     Indication: Crohn^s disease
     Route: 042
     Dates: start: 20241019, end: 20241027
  5. METRONIDAZOLE [Concomitant]
     Active Substance: METRONIDAZOLE
     Indication: Crohn^s disease
     Route: 042
     Dates: start: 20241019, end: 20241021

REACTIONS (1)
  - Intestinal obstruction [Recovered/Resolved]

NARRATIVE: CASE EVENT DATE: 20241019
